FAERS Safety Report 4291783-2 (Version None)
Quarter: 2004Q1

REPORT INFORMATION
  Report Type: 
  Country: None (occurrence: None)
  Receive Date: 20040211
  Receipt Date: 20030408
  Transmission Date: 20041129
  Serious: No
  Sender: FDA-Public Use
  Company Number: US-GLAXOSMITHKLINE-A0404000A

PATIENT
  Age: 48 Year
  Sex: Female

DRUGS (1)
  1. IMITREX [Suspect]
     Indication: MIGRAINE
     Route: 058

REACTIONS (3)
  - DYSGEUSIA [None]
  - LOCAL SWELLING [None]
  - SKIN DISCOLOURATION [None]
